FAERS Safety Report 4395047-8 (Version None)
Quarter: 2004Q3

REPORT INFORMATION
  Report Type: 
  Country: None (occurrence: None)
  Receive Date: 20040707
  Receipt Date: 20040630
  Transmission Date: 20050211
  Serious: Yes (Life-Threatening)
  Sender: FDA-Public Use
  Company Number: 2004216555US

PATIENT
  Age: 1 Year
  Sex: Female
  Weight: 9.3 kg

DRUGS (1)
  1. SOLU-MEDROL [Suspect]
     Indication: JUVENILE ARTHRITIS
     Dosage: 10 MG, BID, IV
     Route: 042
     Dates: start: 20040523, end: 20040525

REACTIONS (3)
  - LARYNGEAL STENOSIS [None]
  - RASH PRURITIC [None]
  - RESPIRATORY DISTRESS [None]
